FAERS Safety Report 6675004-9 (Version None)
Quarter: 2010Q1

REPORT INFORMATION
  Report Type: 
  Country: None (occurrence: None)
  Receive Date: 20100331
  Receipt Date: 20091123
  Transmission Date: 20100710
  Serious: Yes (Hospitalization, Other)
  Sender: FDA-Public Use
  Company Number: 2009278388

PATIENT
  Age: 64 Year
  Sex: Female
  Weight: 59 kg

DRUGS (1)
  1. SUTENT [Suspect]
     Indication: THYROID CANCER
     Dosage: 50 MG, 1X/DAY, ORAL
     Route: 048
     Dates: start: 20090909, end: 20090929

REACTIONS (1)
  - PLATELET COUNT DECREASED [None]
